FAERS Safety Report 15151978 (Version 3)
Quarter: 2020Q3

REPORT INFORMATION
  Report Type: Report from Study
  Country: None (occurrence: CA)
  Receive Date: 20180717
  Receipt Date: 20200716
  Transmission Date: 20201102
  Serious: Yes (Other)
  Sender: FDA-Public Use
  Company Number: CA-ABBVIE-18K-028-2418004-00

PATIENT
  Sex: Male

DRUGS (2)
  1. HUMIRA [Suspect]
     Active Substance: ADALIMUMAB
     Indication: CROHN^S DISEASE
     Route: 058
     Dates: start: 20170622
  2. HUMIRA [Suspect]
     Active Substance: ADALIMUMAB
     Route: 058

REACTIONS (6)
  - Retinal detachment [Unknown]
  - Diarrhoea [Unknown]
  - Injection site erythema [Unknown]
  - Abdominal pain lower [Unknown]
  - Eye swelling [Unknown]
  - Faeces soft [Unknown]

NARRATIVE: CASE EVENT DATE: 2018
